FAERS Safety Report 13670639 (Version 1)
Quarter: 2017Q2

REPORT INFORMATION
  Report Type: Spontaneous
  Country: US (occurrence: US)
  Receive Date: 20170620
  Receipt Date: 20170620
  Transmission Date: 20170830
  Serious: No
  Sender: FDA-Public Use
  Company Number: US-BAXALTA-2017BLT005749

PATIENT
  Sex: Female

DRUGS (1)
  1. HYQVIA [Suspect]
     Active Substance: HUMAN IMMUNOGLOBULIN G\HYALURONIDASE RECOMBINANT HUMAN
     Indication: PRIMARY IMMUNODEFICIENCY SYNDROME
     Dosage: 40 G, EVERY 28 DAYS
     Route: 065
     Dates: start: 20170615, end: 20170615

REACTIONS (4)
  - Infusion site swelling [Unknown]
  - Underdose [Unknown]
  - Dermal absorption impaired [Unknown]
  - Device infusion issue [Unknown]
